FAERS Safety Report 8465615-2 (Version None)
Quarter: 2012Q2

REPORT INFORMATION
  Report Type: 
  Country: None (occurrence: None)
  Receive Date: 20120626
  Receipt Date: 20120614
  Transmission Date: 20120825
  Serious: Yes (Life-Threatening, Other)
  Sender: FDA-Public Use
  Company Number: JP-NAPPMUNDI-MAG-2012-0002204

PATIENT
  Age: 80 Year
  Sex: Female

DRUGS (7)
  1. LOXONIN [Concomitant]
     Dosage: UNK
     Dates: start: 20120301
  2. HYPEN                              /00613801/ [Concomitant]
     Dosage: UNK
     Dates: start: 20090601
  3. RISEDRONATE SODIUM [Concomitant]
     Dosage: UNK
     Dates: start: 20060301
  4. TIZANIDINE HYDROCHLORIDE [Concomitant]
     Dosage: UNK
     Dates: start: 20080701
  5. BUPRENORPHINE [Suspect]
     Indication: MYOFASCIAL PAIN SYNDROME
     Dosage: 5 MCG, Q1H
     Route: 062
     Dates: start: 20120601, end: 20120611
  6. REBAMIPIDE [Concomitant]
     Dosage: UNK
     Dates: start: 20060301
  7. AROFUTO [Concomitant]
     Dosage: UNK
     Dates: start: 20080901

REACTIONS (3)
  - RESPIRATORY ARREST [None]
  - HEART RATE DECREASED [None]
  - SOMNOLENCE [None]
